FAERS Safety Report 4710831-6 (Version None)
Quarter: 2005Q3

REPORT INFORMATION
  Report Type: 
  Country: None (occurrence: None)
  Receive Date: 20050711
  Receipt Date: 20050520
  Transmission Date: 20060218
  Serious: Yes (Other)
  Sender: FDA-Public Use
  Company Number: US-GLAXOSMITHKLINE-A0559557A

PATIENT
  Age: 28 Year
  Sex: Female
  Weight: 104.5 kg

DRUGS (2)
  1. WELLBUTRIN [Suspect]
     Indication: DEPRESSION
     Dosage: 300MG PER DAY
     Route: 048
  2. LEXAPRO [Concomitant]
     Dosage: 20MG PER DAY
     Route: 048

REACTIONS (2)
  - HYPOTHYROIDISM [None]
  - MYOPATHY [None]
